FAERS Safety Report 6250231-3 (Version None)
Quarter: 2009Q2

REPORT INFORMATION
  Report Type: 
  Country: None (occurrence: None)
  Receive Date: 20090630
  Receipt Date: 20090617
  Transmission Date: 20091009
  Serious: Yes (Other)
  Sender: FDA-Public Use
  Company Number: RO-RANBAXY-2009RR-25090

PATIENT
  Sex: Male
  Weight: 73 kg

DRUGS (2)
  1. IMODIUM [Suspect]
     Indication: ENTEROCOLITIS
     Dosage: 2 MG, QD
     Route: 048
     Dates: start: 20050519, end: 20050519
  2. PARACETAMOL [Concomitant]
     Dosage: 500 MG, TID
     Route: 048
     Dates: start: 20050519

REACTIONS (6)
  - AGITATION [None]
  - ANXIETY [None]
  - DYSPHONIA [None]
  - DYSPNOEA [None]
  - PRURITUS [None]
  - URTICARIA [None]
